FAERS Safety Report 23959490 (Version 1)
Quarter: 2024Q2

REPORT INFORMATION
  Report Type: Spontaneous
  Country: US (occurrence: US)
  Receive Date: 20240611
  Receipt Date: 20240611
  Transmission Date: 20240716
  Serious: Yes (Hospitalization, Other)
  Sender: FDA-Public Use
  Company Number: US-009507513-2406USA000454

PATIENT
  Sex: Female

DRUGS (2)
  1. KEYTRUDA [Suspect]
     Active Substance: PEMBROLIZUMAB
     Indication: Anaplastic large cell lymphoma T- and null-cell types
     Dosage: UNK
     Dates: start: 202311, end: 202401
  2. KEYTRUDA [Suspect]
     Active Substance: PEMBROLIZUMAB
     Indication: Neoplasm recurrence

REACTIONS (5)
  - Immune-mediated hypophysitis [Unknown]
  - Hypothyroidism [Unknown]
  - Hypoglycaemia [Unknown]
  - Hyponatraemia [Unknown]
  - Product use in unapproved indication [Unknown]

NARRATIVE: CASE EVENT DATE: 20231101
